FAERS Safety Report 13003675 (Version 3)
Quarter: 2016Q4

REPORT INFORMATION
  Report Type: Spontaneous
  Country: ES (occurrence: ES)
  Receive Date: 20161206
  Receipt Date: 20161229
  Transmission Date: 20170207
  Serious: Yes (Hospitalization, Other)
  Sender: FDA-Public Use
  Company Number: ES-PFIZER INC-2016565496

PATIENT
  Age: 71 Year
  Sex: Female

DRUGS (8)
  1. METFORMIN W/SITAGLIPTIN [Concomitant]
     Active Substance: METFORMIN\SITAGLIPTIN PHOSPHATE
     Indication: DIABETES MELLITUS
     Dosage: 1000 MG / 50 MG, QD
  2. EZETIMIBE W/SIMVASTATIN [Concomitant]
     Active Substance: EZETIMIBE
     Dosage: 40 MG / 10 MG, QD
  3. RAMIPRIL. [Concomitant]
     Active Substance: RAMIPRIL
     Dosage: 5 MG, QD
  4. PANTOPRAZOLE [Suspect]
     Active Substance: PANTOPRAZOLE SODIUM
     Dosage: 40 MG, QD
     Route: 048
  5. BISOPROLOL [Concomitant]
     Active Substance: BISOPROLOL
     Dosage: 2.5 MG, QD
  6. AMLODIPINE [Concomitant]
     Active Substance: AMLODIPINE BESYLATE
     Indication: BLOOD PRESSURE MEASUREMENT
     Dosage: 5 MG, QD
  7. MIXED-TYPE INSULIN (LISPRO PLUS NPH: NEUTRAL, PROTAMINE HAGEDORN) [Concomitant]
     Indication: DIABETES MELLITUS
     Dosage: UNK (50-16-30 IU), RESPECTIVELY)
  8. CLOPIDOGREL [Concomitant]
     Active Substance: CLOPIDOGREL BISULFATE
     Dosage: 75 MG, QD

REACTIONS (4)
  - Dizziness [Unknown]
  - Carotid artery thrombosis [Recovered/Resolved]
  - Spinal osteoarthritis [Unknown]
  - Lacunar infarction [Recovered/Resolved]
